FAERS Safety Report 21005418 (Version 1)
Quarter: 2022Q2

REPORT INFORMATION
  Report Type: Spontaneous
  Country: US (occurrence: US)
  Receive Date: 20220624
  Receipt Date: 20220624
  Transmission Date: 20220721
  Serious: No
  Sender: FDA-Public Use
  Company Number: US-AMGEN-USASP2022105953

PATIENT
  Age: 50 Year
  Sex: Female

DRUGS (1)
  1. SENSIPAR [Suspect]
     Active Substance: CINACALCET HYDROCHLORIDE
     Indication: Product used for unknown indication
     Dosage: 30 MILLIGRAM, QD
     Route: 048
     Dates: start: 20220617

REACTIONS (1)
  - Joint stiffness [Not Recovered/Not Resolved]

NARRATIVE: CASE EVENT DATE: 20220617
